FAERS Safety Report 4639995-X (Version None)
Quarter: 2005Q2

REPORT INFORMATION
  Report Type: 
  Country: None (occurrence: None)
  Receive Date: 20050420
  Receipt Date: 20040805
  Transmission Date: 20051028
  Serious: Yes (Death)
  Sender: FDA-Public Use
  Company Number: 200417749GDDC

PATIENT
  Age: 25 Year
  Sex: Male

DRUGS (1)
  1. DDAVP [Suspect]
     Indication: ENURESIS
     Dosage: DOSE: UNK

REACTIONS (3)
  - BRAIN OEDEMA [None]
  - CONVULSION [None]
  - HYPONATRAEMIA [None]
